FAERS Safety Report 8965244 (Version 1)
Quarter: 2012Q4

REPORT INFORMATION
  Report Type: 
  Country: US (occurrence: US)
  Receive Date: 20121213
  Receipt Date: 20121213
  Transmission Date: 20130627
  Serious: No
  Sender: FDA-Public Use
  Company Number: US-BRISTOL-MYERS SQUIBB COMPANY-17027913

PATIENT
  Age: 48 Year
  Sex: Female
  Weight: 73.01 kg

DRUGS (2)
  1. IXEMPRA [Suspect]
     Indication: BREAST CANCER
     Dates: start: 201207
  2. XELODA [Suspect]
     Indication: BREAST CANCER
     Dosage: Dose reduced on 01Oct2012
     Dates: start: 201207

REACTIONS (2)
  - Paraesthesia [Recovering/Resolving]
  - Weight decreased [Unknown]
